FAERS Safety Report 8379367-8 (Version None)
Quarter: 2012Q2

REPORT INFORMATION
  Report Type: 
  Country: None (occurrence: None)
  Receive Date: 20120523
  Receipt Date: 20120516
  Transmission Date: 20120825
  Serious: No
  Sender: FDA-Public Use
  Company Number: US-ASTRAZENECA-2011SE41454

PATIENT
  Age: 62 Year
  Sex: Female
  Weight: 83.9 kg

DRUGS (48)
  1. NEXIUM [Suspect]
     Route: 048
  2. PRILOSEC [Concomitant]
     Dosage: 20 MG THREE TIMES A DAY
     Dates: start: 20010324
  3. PRILOSEC [Concomitant]
     Dates: start: 20010724
  4. CELEXA [Concomitant]
     Indication: ANXIETY
     Dates: start: 20050101
  5. ASPIRIN [Concomitant]
     Indication: ANTICOAGULANT THERAPY
  6. NITROGLYCERIN [Concomitant]
     Indication: OESOPHAGEAL SPASM
  7. CEFZIL [Concomitant]
  8. PCE [Concomitant]
  9. NEXIUM [Suspect]
     Route: 048
     Dates: start: 20100731
  10. AVAPRO [Concomitant]
     Indication: CARDIAC DISORDER
     Dosage: 30 MG
  11. AVAPRO [Concomitant]
     Dates: start: 20100731
  12. PRILOSEC [Concomitant]
     Indication: CHEST PAIN
  13. ZOCOR [Concomitant]
     Indication: BLOOD CHOLESTEROL
  14. UROMAR [Concomitant]
     Indication: BLADDER SPASM
  15. NEXIUM [Suspect]
     Route: 048
     Dates: start: 20011218
  16. ATENOLOL [Concomitant]
     Indication: CARDIAC DISORDER
  17. HYDROCHLOROTHIZIDE [Concomitant]
     Dates: start: 20100731
  18. PRILOSEC [Concomitant]
     Dosage: 20 MG THREE TIMES A DAY
     Dates: start: 20010324
  19. CENESTIN [Concomitant]
     Indication: HORMONE THERAPY
  20. NEXIUM [Suspect]
     Indication: CHEST PAIN
     Route: 048
     Dates: start: 20010101
  21. NEXIUM [Suspect]
     Dosage: 1/DAY, TOOK 2/DAY FROM FEBRUARY 2006 TO DECEMBER 2006
     Route: 048
     Dates: start: 20010401
  22. NEXIUM [Suspect]
     Dosage: 1/DAY, TOOK 2/DAY FROM FEBRUARY 2006 TO DECEMBER 2006
     Route: 048
     Dates: start: 20010401
  23. NEXIUM [Suspect]
     Route: 048
     Dates: start: 20011218
  24. PRILOSEC [Concomitant]
     Dates: start: 20010724
  25. ZOCOR [Concomitant]
     Dates: start: 20100731
  26. CELEXA [Concomitant]
     Dates: start: 20100731
  27. PREMARIN [Concomitant]
     Indication: HORMONE THERAPY
  28. PAXIL [Concomitant]
     Indication: DEPRESSION
     Dates: start: 20011218
  29. NEXIUM [Suspect]
     Route: 048
  30. NEXIUM [Suspect]
     Route: 048
     Dates: start: 20100731
  31. HYDROCHLOROTHIZIDE [Concomitant]
     Indication: CARDIAC DISORDER
  32. PRILOSEC [Concomitant]
     Indication: GASTROOESOPHAGEAL REFLUX DISEASE
  33. PLAVIX [Concomitant]
     Indication: CARDIAC DISORDER
     Dates: start: 20050101
  34. PLAVIX [Concomitant]
     Indication: PERIPHERAL VASCULAR DISORDER
     Dates: start: 20050101
  35. NORVASC [Concomitant]
     Indication: BLOOD PRESSURE
  36. EFFEXOR XR [Concomitant]
     Indication: DEPRESSION
     Dates: start: 20011219
  37. CELEXA [Concomitant]
     Indication: DEPRESSION
     Dates: start: 20050101
  38. PAXIL [Concomitant]
  39. FOSAMOX [Concomitant]
     Indication: OSTEOPOROSIS
  40. EFFEXOR XR [Concomitant]
     Dates: end: 20050101
  41. BENTYL [Concomitant]
  42. PHENERGAN [Concomitant]
  43. ATENOLOL [Concomitant]
     Dates: start: 20100731
  44. CELEXA [Concomitant]
     Dates: start: 20100731
  45. METAMUCIL-2 [Concomitant]
  46. NEXIUM [Suspect]
     Indication: GASTROOESOPHAGEAL REFLUX DISEASE
     Route: 048
     Dates: start: 20010101
  47. LEVOTHYROXINE SODIUM [Concomitant]
     Indication: HYPOTHYROIDISM
     Dosage: 80 TO 88 MCG
  48. DIOVAN [Concomitant]
     Indication: BLOOD PRESSURE

REACTIONS (15)
  - NECK PAIN [None]
  - DEPRESSION [None]
  - CHEST PAIN [None]
  - PERIPHERAL VASCULAR DISORDER [None]
  - OSTEOPENIA [None]
  - ABDOMINAL PAIN LOWER [None]
  - MUSCULOSKELETAL DISCOMFORT [None]
  - FALL [None]
  - ARTHROPATHY [None]
  - BONE DENSITY DECREASED [None]
  - HYPOTHYROIDISM [None]
  - OSTEOPOROSIS [None]
  - LIMB DISCOMFORT [None]
  - ABDOMINAL PAIN [None]
  - INFLUENZA [None]
